FAERS Safety Report 10669942 (Version 2)
Quarter: 2015Q1

REPORT INFORMATION
  Report Type: Spontaneous
  Country: US (occurrence: US)
  Receive Date: 20141223
  Receipt Date: 20150114
  Transmission Date: 20150720
  Serious: No
  Sender: FDA-Public Use
  Company Number: US-GILEAD-2014-0128077

PATIENT
  Age: 34 Year
  Sex: Male

DRUGS (1)
  1. HARVONI [Suspect]
     Active Substance: LEDIPASVIR\SOFOSBUVIR
     Indication: HEPATITIS C
     Dosage: UNK
     Route: 065
     Dates: start: 20141117, end: 20150112

REACTIONS (2)
  - Blood creatine phosphokinase increased [Unknown]
  - Muscle strain [Unknown]

NARRATIVE: CASE EVENT DATE: 20141201
